FAERS Safety Report 11227383 (Version 1)
Quarter: 2015Q2

REPORT INFORMATION
  Report Type: Other
  Country: US (occurrence: US)
  Receive Date: 20150630
  Receipt Date: 20150630
  Transmission Date: 20150821
  Serious: Yes (Other)
  Sender: FDA-Public Use
  Company Number: US-ENDO PHARMACEUTICALS INC-2015-001545

PATIENT
  Age: 27 Year
  Sex: Female

DRUGS (2)
  1. OLANZAPINE. [Suspect]
     Active Substance: OLANZAPINE
     Indication: PRODUCT USED FOR UNKNOWN INDICATION
     Dosage: 150-300 MG
     Route: 048
  2. HYDROXYZINE HYDROCHLORIDE TABLETS [Suspect]
     Active Substance: HYDROXYZINE HYDROCHLORIDE
     Indication: PRODUCT USED FOR UNKNOWN INDICATION
     Dosage: 1600-2250 MG
     Route: 048

REACTIONS (7)
  - Agitation [Recovered/Resolved]
  - Gastrointestinal sounds abnormal [Recovered/Resolved]
  - Hallucination [Recovered/Resolved]
  - Skin warm [Recovered/Resolved]
  - Dry skin [Recovered/Resolved]
  - Overdose [Recovered/Resolved]
  - Tachycardia [Recovered/Resolved]
